FAERS Safety Report 24666981 (Version 2)
Quarter: 2024Q4

REPORT INFORMATION
  Report Type: Spontaneous
  Country: GB (occurrence: GB)
  Receive Date: 20241126
  Receipt Date: 20241206
  Transmission Date: 20250114
  Serious: Yes (Other)
  Sender: PFIZER
  Company Number: None

PATIENT
  Sex: Female

DRUGS (1)
  1. DOXYCYCLINE [Suspect]
     Active Substance: DOXYCYCLINE
     Dosage: UNK

REACTIONS (5)
  - Syncope [Unknown]
  - Hypersensitivity [Unknown]
  - Lethargy [Unknown]
  - Rash papular [Unknown]
  - Seasonal allergy [Unknown]
